FAERS Safety Report 9675599 (Version 2)
Quarter: 2013Q4

REPORT INFORMATION
  Report Type: Spontaneous
  Country: US (occurrence: US)
  Receive Date: 20131107
  Receipt Date: 20131107
  Transmission Date: 20140711
  Serious: Yes (Disabling, Other)
  Sender: FDA-Public Use
  Company Number: US-009507513-1108USA01354

PATIENT
  Sex: Female
  Weight: 60.77 kg

DRUGS (4)
  1. FOSAMAX [Suspect]
     Indication: OSTEOPOROSIS
     Dosage: 70 MG, QW
     Route: 048
     Dates: start: 2001, end: 2004
  2. FOSAMAX [Suspect]
     Dosage: 70 MG, QW
     Route: 048
     Dates: start: 2006, end: 2009
  3. FOSAMAX PLUS D [Suspect]
     Indication: OSTEOPOROSIS
     Dosage: 70 MG, QW
     Route: 048
     Dates: start: 2009, end: 2010
  4. ALENDRONATE SODIUM [Suspect]
     Indication: OSTEOPOROSIS
     Dosage: 70 MG, UNK
     Route: 048

REACTIONS (58)
  - Chronic obstructive pulmonary disease [Not Recovered/Not Resolved]
  - Osteonecrosis of jaw [Unknown]
  - Depression [Unknown]
  - Anxiety [Unknown]
  - Pain [Unknown]
  - Toothache [Unknown]
  - Toothache [Unknown]
  - Exostosis of jaw [Unknown]
  - Exostosis [Unknown]
  - Dental caries [Unknown]
  - Oral infection [Unknown]
  - Oral disorder [Unknown]
  - Exostosis [Unknown]
  - Stomatitis [Unknown]
  - Fistula discharge [Unknown]
  - Tooth disorder [Unknown]
  - Hyperlipidaemia [Unknown]
  - Foot fracture [Unknown]
  - Chest pain [Unknown]
  - Road traffic accident [Unknown]
  - Tooth fracture [Unknown]
  - Periodontal disease [Unknown]
  - Gingival bleeding [Unknown]
  - Gingival pain [Unknown]
  - Oral disorder [Unknown]
  - Tooth fracture [Unknown]
  - Arthritis [Unknown]
  - Gastric polyps [Unknown]
  - Large intestine polyp [Unknown]
  - Anaemia [Unknown]
  - Angina pectoris [Unknown]
  - Thyroid disorder [Unknown]
  - Seasonal allergy [Unknown]
  - Bruxism [Unknown]
  - Tonsillar hypertrophy [Unknown]
  - Hysterectomy [Unknown]
  - Thromboangiitis obliterans [Unknown]
  - Restless legs syndrome [Unknown]
  - Neuropathy peripheral [Unknown]
  - Stress urinary incontinence [Unknown]
  - Haematochezia [Unknown]
  - Musculoskeletal disorder [Unknown]
  - Seborrhoeic keratosis [Unknown]
  - Vitamin B12 deficiency [Unknown]
  - Lip swelling [Unknown]
  - Drug ineffective [Unknown]
  - Gastrooesophageal reflux disease [Unknown]
  - Melaena [Unknown]
  - Arthralgia [Unknown]
  - Drug ineffective [Unknown]
  - Aphthous stomatitis [Unknown]
  - Back pain [Unknown]
  - Nausea [Unknown]
  - Pruritus [Unknown]
  - Pain in extremity [Unknown]
  - Neck pain [Unknown]
  - Dizziness [Unknown]
  - Headache [Unknown]
